FAERS Safety Report 19939079 (Version 2)
Quarter: 2021Q4

REPORT INFORMATION
  Report Type: Spontaneous
  Country: DE (occurrence: DE)
  Receive Date: 20211011
  Receipt Date: 20211202
  Transmission Date: 20220304
  Serious: Yes (Other)
  Sender: FDA-Public Use
  Company Number: None

PATIENT
  Age: 58 Year
  Sex: Female
  Weight: 60 kg

DRUGS (2)
  1. CETIRIZINE HYDROCHLORIDE [Suspect]
     Active Substance: CETIRIZINE HYDROCHLORIDE
     Indication: Mast cell activation syndrome
     Dosage: 10 MG, QD
     Route: 048
     Dates: start: 20210910, end: 20210927
  2. CETIRIZINE HYDROCHLORIDE [Suspect]
     Active Substance: CETIRIZINE HYDROCHLORIDE
     Indication: Hypersensitivity
     Dosage: 0.25 DOSAGE FORM, QD(EINNAHME VON EINER VIERTEL TABLETTE)
     Route: 048
     Dates: start: 20210927, end: 20210927

REACTIONS (12)
  - Anaphylactic reaction [Recovered/Resolved]
  - Eyelid oedema [Recovered/Resolved]
  - Throat tightness [Recovered/Resolved]
  - Diarrhoea [Unknown]
  - Cognitive disorder [Recovering/Resolving]
  - Visual impairment [Recovered/Resolved]
  - Temperature intolerance [Recovering/Resolving]
  - Oedema mucosal [Recovered/Resolved]
  - Asthenia [Recovering/Resolving]
  - Somnolence [Recovering/Resolving]
  - Malaise [Recovering/Resolving]
  - Lip swelling [Recovered/Resolved]

NARRATIVE: CASE EVENT DATE: 20210101
